FAERS Safety Report 6236388-9 (Version None)
Quarter: 2009Q2

REPORT INFORMATION
  Report Type: 
  Country: None (occurrence: None)
  Receive Date: 20090619
  Receipt Date: 20090612
  Transmission Date: 20091009
  Serious: Yes (Hospitalization)
  Sender: FDA-Public Use
  Company Number: FR-BAXTER-2009BH010031

PATIENT
  Age: 25 Year
  Sex: Female

DRUGS (5)
  1. HOLOXAN BAXTER [Suspect]
     Indication: HODGKIN'S DISEASE STAGE IV
     Route: 042
     Dates: start: 20090320, end: 20090324
  2. ETOPOSIDE [Suspect]
     Indication: HODGKIN'S DISEASE STAGE IV
     Route: 042
     Dates: start: 20090320, end: 20090321
  3. VINORELBINE TARTRATE [Suspect]
     Indication: HODGKIN'S DISEASE STAGE IV
     Route: 042
     Dates: start: 20090320, end: 20090324
  4. METHYL-GAG [Suspect]
     Indication: HODGKIN'S DISEASE STAGE IV
     Route: 042
     Dates: start: 20090320, end: 20090324
  5. LENOGRASTIM [Suspect]
     Indication: HODGKIN'S DISEASE STAGE IV
     Route: 065
     Dates: start: 20090323, end: 20090329

REACTIONS (1)
  - CELLULITIS [None]
